FAERS Safety Report 16430687 (Version 1)
Quarter: 2019Q2

REPORT INFORMATION
  Report Type: Report from Study
  Country: CR (occurrence: CR)
  Receive Date: 20190614
  Receipt Date: 20190614
  Transmission Date: 20190711
  Serious: Yes (Other)
  Sender: FDA-Public Use
  Company Number: PHHY2019CR134191

PATIENT
  Age: 79 Year
  Sex: Female

DRUGS (1)
  1. VYMADA [Suspect]
     Active Substance: SACUBITRIL\VALSARTAN
     Indication: PRODUCT USED FOR UNKNOWN INDICATION
     Dosage: 50 MG, QD
     Route: 065

REACTIONS (5)
  - Cardiac failure [Unknown]
  - Inappropriate schedule of product administration [Unknown]
  - Fluid retention [Unknown]
  - Cardiac disorder [Unknown]
  - Prescribed underdose [Unknown]
